FAERS Safety Report 16320860 (Version 2)
Quarter: 2019Q3

REPORT INFORMATION
  Report Type: Report from Study
  Country: GT (occurrence: GT)
  Receive Date: 20190516
  Receipt Date: 20190906
  Transmission Date: 20191004
  Serious: Yes (Hospitalization, Other)
  Sender: FDA-Public Use
  Company Number: GT-BAYER-2019-013628

PATIENT
  Age: 45 Year
  Sex: Female

DRUGS (2)
  1. NEXAVAR [Suspect]
     Active Substance: SORAFENIB
     Indication: HEPATOCELLULAR CARCINOMA
     Dosage: UNK
     Dates: start: 20141210
  2. XARELTO [Concomitant]
     Active Substance: RIVAROXABAN
     Indication: INFLAMMATION
     Dosage: 20 MG, QD

REACTIONS (5)
  - Musculoskeletal disorder [None]
  - Peripheral swelling [Recovered/Resolved with Sequelae]
  - Inflammation [None]
  - Dry skin [Recovering/Resolving]
  - Thrombosis [None]

NARRATIVE: CASE EVENT DATE: 20181231
